FAERS Safety Report 9338842 (Version 1)
Quarter: 2013Q2

REPORT INFORMATION
  Report Type: Spontaneous
  Country: BR (occurrence: BR)
  Receive Date: 20130610
  Receipt Date: 20130610
  Transmission Date: 20140414
  Serious: Yes (Other)
  Sender: FDA-Public Use
  Company Number: BR-ELI_LILLY_AND_COMPANY-BR201305008177

PATIENT
  Age: 16 Year
  Sex: Female
  Weight: 70 kg

DRUGS (2)
  1. CYMBALTA [Suspect]
     Indication: FIBROMYALGIA
     Dosage: 30 MG, QD
     Route: 048
     Dates: start: 20130526, end: 20130526
  2. DROSPIRENONE W/ETHINYLESTRADIOL [Concomitant]
     Indication: CONTRACEPTION
     Dosage: UNK, UNKNOWN
     Route: 065

REACTIONS (9)
  - Confusional state [Not Recovered/Not Resolved]
  - Slow response to stimuli [Not Recovered/Not Resolved]
  - Speech disorder [Not Recovered/Not Resolved]
  - Off label use [Unknown]
  - Muscular weakness [Not Recovered/Not Resolved]
  - Yawning [Not Recovered/Not Resolved]
  - Tremor [Not Recovered/Not Resolved]
  - Somnolence [Not Recovered/Not Resolved]
  - Blood pressure increased [Not Recovered/Not Resolved]
